FAERS Safety Report 4516506-0 (Version None)
Quarter: 2004Q4

REPORT INFORMATION
  Report Type: 
  Country: None (occurrence: None)
  Receive Date: 20041027
  Receipt Date: 20040721
  Transmission Date: 20050328
  Serious: No
  Sender: FDA-Public Use
  Company Number: US084352

PATIENT
  Age: 64 Year
  Sex: Male

DRUGS (10)
  1. SENSIPAR [Suspect]
     Indication: HYPERPARATHYROIDISM SECONDARY
     Dosage: 30 MG, 1 IN 1 DAYS, PO
     Route: 048
     Dates: start: 20040602, end: 20040607
  2. ACETAMINOPHEN [Concomitant]
  3. ATENOLOL [Concomitant]
  4. ATORVASTATIN [Concomitant]
  5. ROSIGLITAZONE MALEATE [Concomitant]
  6. ACETYLSALICYLIC ACID [Concomitant]
  7. INSULIN [Concomitant]
  8. CLOPIDOGREL BISULFATE [Concomitant]
  9. QUININE [Concomitant]
  10. SERTRALINE HYDROCHLORIDE [Concomitant]

REACTIONS (2)
  - EPISTAXIS [None]
  - HEADACHE [None]
